FAERS Safety Report 6634396-7 (Version None)
Quarter: 2010Q1

REPORT INFORMATION
  Report Type: 
  Country: None (occurrence: None)
  Receive Date: 20100315
  Receipt Date: 20100302
  Transmission Date: 20100710
  Serious: Yes (Hospitalization)
  Sender: FDA-Public Use
  Company Number: US-ROCHE-683465

PATIENT
  Sex: Female
  Weight: 88.1 kg

DRUGS (11)
  1. TOCILIZUMAB [Suspect]
     Indication: RHEUMATOID ARTHRITIS
     Route: 042
     Dates: start: 20061219
  2. TOCILIZUMAB [Suspect]
     Route: 042
     Dates: start: 20090825
  3. TOCILIZUMAB [Suspect]
     Route: 042
     Dates: start: 20090922
  4. TOCILIZUMAB [Suspect]
     Route: 042
     Dates: start: 20091118
  5. TOCILIZUMAB [Suspect]
     Route: 042
     Dates: start: 20091216
  6. TOCILIZUMAB [Suspect]
     Dosage: PATIENT  WAS INVOLVED IN WA18062.
     Route: 042
  7. METHOTREXATE [Concomitant]
     Route: 048
  8. CLONIDINE [Concomitant]
     Dates: start: 20091009
  9. ASPIRIN [Concomitant]
     Route: 048
     Dates: start: 20090505
  10. FUROSEMIDE [Concomitant]
     Dates: start: 20080508
  11. POTASSIUM CHLORIDE [Concomitant]
     Dates: start: 20080508

REACTIONS (1)
  - CEREBROVASCULAR ACCIDENT [None]
